FAERS Safety Report 24921257 (Version 1)
Quarter: 2025Q1

REPORT INFORMATION
  Report Type: Spontaneous
  Country: DE (occurrence: DE)
  Receive Date: 20250204
  Receipt Date: 20250204
  Transmission Date: 20250408
  Serious: Yes (Other)
  Sender: REGENERON
  Company Number: DE-DCGMA-25204599

PATIENT
  Age: 54 Year
  Sex: Female

DRUGS (1)
  1. PRALUENT [Suspect]
     Active Substance: ALIROCUMAB
     Indication: Hypercholesterolaemia
     Dosage: 150 MG, QOW

REACTIONS (4)
  - Myalgia [Recovering/Resolving]
  - Cognitive disorder [Recovering/Resolving]
  - Hyperaesthesia [Recovering/Resolving]
  - Influenza like illness [Recovering/Resolving]
